FAERS Safety Report 10195843 (Version 2)
Quarter: 2014Q2

REPORT INFORMATION
  Report Type: Spontaneous
  Country: US (occurrence: US)
  Receive Date: 20140527
  Receipt Date: 20140602
  Transmission Date: 20141212
  Serious: Yes (Other)
  Sender: FDA-Public Use
  Company Number: US-AMGEN INC.-USASP2014038652

PATIENT
  Age: 63 Year
  Sex: Female
  Weight: 90.72 kg

DRUGS (6)
  1. ENBREL [Suspect]
     Indication: RHEUMATOID ARTHRITIS
     Dosage: UNK UNK, QWK
     Route: 058
     Dates: start: 2005, end: 2013
  2. ENBREL [Suspect]
     Indication: PSORIATIC ARTHROPATHY
  3. SYNTHROID [Concomitant]
     Dosage: UNK
  4. VICODIN [Concomitant]
     Dosage: UNK
  5. TEMOVATE [Concomitant]
     Dosage: UNK
  6. PROAIR                             /00139502/ [Concomitant]
     Dosage: UNK

REACTIONS (2)
  - Brain neoplasm [Not Recovered/Not Resolved]
  - Lung cancer metastatic [Not Recovered/Not Resolved]
